FAERS Safety Report 5173520-2 (Version None)
Quarter: 2006Q4

REPORT INFORMATION
  Report Type: 
  Country: None (occurrence: None)
  Receive Date: 20061207
  Receipt Date: 20061207
  Transmission Date: 20070319
  Serious: Yes (Hospitalization)
  Sender: FDA-Public Use
  Company Number: None

PATIENT
  Sex: Male
  Weight: 70 kg

DRUGS (4)
  1. DAUNORUBICIN HCL [Suspect]
     Dosage: 330 MG
     Dates: end: 20060818
  2. DEXAMETHASONE [Suspect]
     Dosage: 280 MG
     Dates: end: 20060822
  3. L-ASPARAGINASE [Suspect]
     Dosage: 33000 MG
     Dates: end: 20060902
  4. VINCRISTINE SULFATE [Suspect]
     Dosage: 4 MG
     Dates: end: 20060830

REACTIONS (34)
  - BACTERIAL INFECTION [None]
  - BLOOD ALBUMIN DECREASED [None]
  - BLOOD BICARBONATE DECREASED [None]
  - BLOOD FIBRINOGEN DECREASED [None]
  - BLOOD PH INCREASED [None]
  - BRONCHOSCOPY ABNORMAL [None]
  - CANDIDIASIS [None]
  - CHEST DISCOMFORT [None]
  - CHROMOSOME ANALYSIS ABNORMAL [None]
  - COAGULOPATHY [None]
  - DYSPNOEA [None]
  - FLUID OVERLOAD [None]
  - GENERAL PHYSICAL HEALTH DETERIORATION [None]
  - HEPATIC STEATOSIS [None]
  - HYPERBILIRUBINAEMIA [None]
  - HYPOTENSION [None]
  - HYPOXIA [None]
  - LOBAR PNEUMONIA [None]
  - LUNG INFILTRATION [None]
  - MALAISE [None]
  - NEPHROPATHY [None]
  - OEDEMA PERIPHERAL [None]
  - ORAL INTAKE REDUCED [None]
  - OXYGEN SATURATION DECREASED [None]
  - PO2 DECREASED [None]
  - PULMONARY ALVEOLAR HAEMORRHAGE [None]
  - PULMONARY HAEMORRHAGE [None]
  - PYREXIA [None]
  - RENAL FAILURE [None]
  - SEPSIS [None]
  - SERRATIA INFECTION [None]
  - TACHYCARDIA [None]
  - TACHYPNOEA [None]
  - TRANSAMINASES INCREASED [None]
